FAERS Safety Report 5836982-0 (Version None)
Quarter: 2008Q3

REPORT INFORMATION
  Report Type: 
  Country: None (occurrence: None)
  Receive Date: 20080805
  Receipt Date: 20071026
  Transmission Date: 20090109
  Serious: Yes (Other)
  Sender: FDA-Public Use
  Company Number: JHP200700200

PATIENT
  Sex: Female

DRUGS (2)
  1. DELESTROGEN [Suspect]
     Indication: HORMONE REPLACEMENT THERAPY
     Dates: start: 19790101, end: 20010101
  2. ESTRACE [Suspect]
     Indication: HORMONE REPLACEMENT THERAPY
     Dates: start: 19790101, end: 20010101

REACTIONS (1)
  - OVARIAN CANCER [None]
